FAERS Safety Report 9372801 (Version 1)
Quarter: 2013Q2

REPORT INFORMATION
  Report Type: Report from Study
  Country: US (occurrence: US)
  Receive Date: 20130627
  Receipt Date: 20130627
  Transmission Date: 20140414
  Serious: Yes (Other)
  Sender: FDA-Public Use
  Company Number: US-MYLANLABS-2013S1009111

PATIENT
  Age: 23 Year
  Sex: Male
  Weight: 93.8 kg

DRUGS (3)
  1. CLOZAPINE TABLETS [Suspect]
     Indication: SCHIZOPHRENIA
     Route: 048
     Dates: start: 201303, end: 201304
  2. CLOZAPINE TABLETS [Suspect]
     Indication: SCHIZOPHRENIA
     Route: 048
     Dates: start: 201303, end: 20130412
  3. ZOVIRAX [Concomitant]
     Dates: start: 2013

REACTIONS (1)
  - Granulocytopenia [Recovered/Resolved]
